FAERS Safety Report 7242861-7 (Version None)
Quarter: 2011Q1

REPORT INFORMATION
  Report Type: 
  Country: None (occurrence: None)
  Receive Date: 20110125
  Receipt Date: 20110117
  Transmission Date: 20110831
  Serious: Yes (Hospitalization)
  Sender: FDA-Public Use
  Company Number: FR-JNJFOC-20110104674

PATIENT
  Sex: Male

DRUGS (17)
  1. EFFERALGAN [Concomitant]
     Indication: ILL-DEFINED DISORDER
  2. KETUM [Concomitant]
     Indication: ILL-DEFINED DISORDER
  3. REOPRO [Suspect]
     Indication: ILL-DEFINED DISORDER
     Route: 042
  4. CARDENSIEL [Suspect]
     Indication: ILL-DEFINED DISORDER
  5. NEXIUM [Concomitant]
     Indication: ILL-DEFINED DISORDER
  6. TAHOR [Concomitant]
     Indication: ILL-DEFINED DISORDER
  7. HEPARIN [Concomitant]
     Indication: ILL-DEFINED DISORDER
  8. LASIX [Concomitant]
     Indication: ILL-DEFINED DISORDER
  9. PLAVIX [Concomitant]
     Indication: ILL-DEFINED DISORDER
  10. SECTRAL [Concomitant]
     Indication: ILL-DEFINED DISORDER
  11. RISORDAN [Concomitant]
     Indication: ILL-DEFINED DISORDER
  12. MOPRAL [Concomitant]
     Indication: ILL-DEFINED DISORDER
  13. KRENOSIN [Suspect]
     Indication: ILL-DEFINED DISORDER
     Route: 022
  14. LOVENOX [Concomitant]
     Indication: ILL-DEFINED DISORDER
  15. ASPEGIC 325 [Concomitant]
     Indication: ILL-DEFINED DISORDER
  16. COVERSYL [Concomitant]
     Indication: ILL-DEFINED DISORDER
  17. NEBIVOLOL HCL [Concomitant]
     Indication: ILL-DEFINED DISORDER

REACTIONS (3)
  - BRADYARRHYTHMIA [None]
  - VENTRICULAR EXTRASYSTOLES [None]
  - ELECTROCARDIOGRAM QT PROLONGED [None]
